FAERS Safety Report 4501940-5 (Version None)
Quarter: 2004Q4

REPORT INFORMATION
  Report Type: 
  Country: None (occurrence: None)
  Receive Date: 20041109
  Receipt Date: 20041027
  Transmission Date: 20050328
  Serious: Yes (Other)
  Sender: FDA-Public Use
  Company Number: 2004241452AU

PATIENT
  Sex: Male

DRUGS (7)
  1. LONITEN [Suspect]
  2. ALDOMET [Concomitant]
  3. CAPOTEN [Concomitant]
  4. MODURETIC 5-50 [Concomitant]
  5. LOSEC [Concomitant]
  6. TENORMIN [Concomitant]
  7. LANOXIN [Concomitant]

REACTIONS (4)
  - ASTHENOPIA [None]
  - CATARACT [None]
  - EYE PAIN [None]
  - EYE REDNESS [None]
